FAERS Safety Report 25215006 (Version 5)
Quarter: 2025Q3

REPORT INFORMATION
  Report Type: Spontaneous
  Country: US (occurrence: US)
  Receive Date: 20250418
  Receipt Date: 20250801
  Transmission Date: 20251021
  Serious: Yes (Disabling)
  Sender: SUNOVION
  Company Number: US-SUMITOMO PHARMA SWITZERLAND GMBH-2025SPA004622

PATIENT

DRUGS (1)
  1. ORGOVYX [Suspect]
     Active Substance: RELUGOLIX
     Indication: Prostate cancer
     Route: 048
     Dates: start: 20240507

REACTIONS (3)
  - Lumbosacral plexopathy [Not Recovered/Not Resolved]
  - Nodule [Not Recovered/Not Resolved]
  - Spinal stenosis [Not Recovered/Not Resolved]

NARRATIVE: CASE EVENT DATE: 20240924
